FAERS Safety Report 24370963 (Version 1)
Quarter: 2024Q3

REPORT INFORMATION
  Report Type: Spontaneous
  Country: US (occurrence: US)
  Receive Date: 20240927
  Receipt Date: 20240927
  Transmission Date: 20241016
  Serious: No
  Sender: CHIESI
  Company Number: US-CHIESI-2023CHF04687

PATIENT
  Age: 3 Year
  Sex: Female
  Weight: 33 kg

DRUGS (4)
  1. FERRIPROX [Suspect]
     Active Substance: DEFERIPRONE
     Indication: Haemochromatosis
     Dosage: 11 MILLILITER, TID
     Route: 048
     Dates: start: 20180812, end: 2023
  2. FERRIPROX [Suspect]
     Active Substance: DEFERIPRONE
     Indication: Transfusion
     Dosage: 11 MILLILITER, TID
     Route: 048
     Dates: start: 2023
  3. FERRIPROX [Suspect]
     Active Substance: DEFERIPRONE
     Indication: Thalassaemia
  4. JADENU [Concomitant]
     Active Substance: DEFERASIROX
     Indication: Product used for unknown indication
     Dosage: UNK

REACTIONS (3)
  - Hepatic enzyme increased [Recovered/Resolved]
  - Off label use [Not Recovered/Not Resolved]
  - Prescribed overdose [Not Recovered/Not Resolved]

NARRATIVE: CASE EVENT DATE: 20180812
